FAERS Safety Report 12709459 (Version 1)
Quarter: 2016Q3

REPORT INFORMATION
  Report Type: Spontaneous
  Country: CN (occurrence: CN)
  Receive Date: 20160902
  Receipt Date: 20160902
  Transmission Date: 20161109
  Serious: Yes (Life-Threatening)
  Sender: FDA-Public Use
  Company Number: CN-ROCHE-1821878

PATIENT
  Age: 14 Month
  Sex: Male
  Weight: 9.2 kg

DRUGS (2)
  1. MUCOSOLVAN [Concomitant]
     Active Substance: AMBROXOL HYDROCHLORIDE
     Indication: PNEUMONIA
     Route: 041
     Dates: start: 20160828
  2. ROCEPHIN [Suspect]
     Active Substance: CEFTRIAXONE SODIUM
     Indication: PNEUMONIA
     Dosage: 1G/50ML
     Route: 041
     Dates: start: 20160828, end: 20160828

REACTIONS (6)
  - Blood pressure increased [Recovering/Resolving]
  - Cyanosis [Recovering/Resolving]
  - Tachycardia [Recovering/Resolving]
  - Pallor [Recovering/Resolving]
  - Rales [Recovering/Resolving]
  - Erythema [Recovered/Resolved]

NARRATIVE: CASE EVENT DATE: 20160828
